FAERS Safety Report 5084982-3 (Version None)
Quarter: 2006Q3

REPORT INFORMATION
  Report Type: 
  Country: None (occurrence: None)
  Receive Date: 20060815
  Receipt Date: 20060807
  Transmission Date: 20061208
  Serious: Yes (Hospitalization)
  Sender: FDA-Public Use
  Company Number: B0433257A

PATIENT
  Age: 41 Year
  Sex: Female

DRUGS (2)
  1. PAXIL [Suspect]
     Dosage: 30 MG / PER DAY
  2. THYROXINE SODIUM [Concomitant]

REACTIONS (5)
  - AGITATION [None]
  - CEREBRAL INFARCTION [None]
  - CEREBRAL VASOCONSTRICTION [None]
  - CEREBROVASCULAR SPASM [None]
  - VASCULITIS CEREBRAL [None]
